FAERS Safety Report 9834129 (Version 1)
Quarter: 2014Q1

REPORT INFORMATION
  Report Type: Other
  Country: GB (occurrence: GB)
  Receive Date: 20140122
  Receipt Date: 20140122
  Transmission Date: 20141002
  Serious: Yes (Death, Hospitalization)
  Sender: FDA-Public Use
  Company Number: GB-PERRIGO-14GB000408

PATIENT
  Sex: 0

DRUGS (16)
  1. PARACETAMOL 16028/0012 500 MG [Suspect]
     Indication: GOUT
     Dosage: 16 GRAMS RECEIVED. 1 GRAM 6-HOURLY BY MOUTH
     Route: 048
     Dates: start: 20130822, end: 20130828
  2. TAZOCIN [Suspect]
     Indication: URINARY TRACT INFECTION
     Dosage: 10 DOSES GIVEN. 4.5 G 8-HOURLY
     Route: 042
     Dates: start: 20130822, end: 20130828
  3. ALLOPURINOL [Concomitant]
     Indication: GOUT
     Dosage: INCREASED DOSE IN AUGUST 2013 TO TREAT THE GOUT
     Route: 065
  4. BISOPROLOL [Concomitant]
     Indication: PRODUCT USED FOR UNKNOWN INDICATION
     Dosage: UNK
     Route: 065
  5. CANDESARTAN [Concomitant]
     Indication: PRODUCT USED FOR UNKNOWN INDICATION
     Dosage: UNK
     Route: 065
  6. COLCHICINE [Concomitant]
     Indication: GOUT
     Dosage: UNK
     Route: 065
  7. DIGOXIN [Concomitant]
     Indication: PRODUCT USED FOR UNKNOWN INDICATION
     Dosage: UNK
     Route: 065
  8. FINASTERIDE [Concomitant]
     Indication: PRODUCT USED FOR UNKNOWN INDICATION
     Dosage: UNK
     Route: 065
  9. FUROSEMIDE [Concomitant]
     Indication: PRODUCT USED FOR UNKNOWN INDICATION
     Dosage: UNK
     Route: 065
     Dates: start: 201308, end: 201308
  10. IBUPROFEN [Concomitant]
     Indication: GOUT
     Dosage: STOPPED DUE TO IMPAIRED RENAL FUNCTION, PARACETAMOL SUBSTITUTED AS PAIN KILLER
     Route: 065
     Dates: start: 201308, end: 201308
  11. IBUPROFEN [Concomitant]
     Indication: PAIN
  12. PRAVASTATIN [Concomitant]
     Indication: PRODUCT USED FOR UNKNOWN INDICATION
     Dosage: UNK
     Route: 065
  13. SPIRONOLACTONE [Concomitant]
     Indication: PRODUCT USED FOR UNKNOWN INDICATION
     Dosage: UNK
     Route: 065
  14. TAMSULOSIN [Concomitant]
     Indication: PRODUCT USED FOR UNKNOWN INDICATION
     Dosage: UNK
     Route: 065
  15. TRIMETHOPRIM [Concomitant]
     Indication: URINARY TRACT INFECTION
     Dosage: UNK
     Route: 065
  16. WARFARIN [Concomitant]
     Indication: ANTICOAGULANT THERAPY
     Dosage: UNK
     Route: 065

REACTIONS (3)
  - Cardiac arrest [Fatal]
  - Hepatitis [Fatal]
  - Convulsion [Not Recovered/Not Resolved]
